FAERS Safety Report 15161239 (Version 1)
Quarter: 2018Q3

REPORT INFORMATION
  Report Type: Spontaneous
  Country: US (occurrence: US)
  Receive Date: 20180718
  Receipt Date: 20180718
  Transmission Date: 20181010
  Serious: No
  Sender: FDA-Public Use
  Company Number: US-AMGEN-USASP2010001907

PATIENT
  Age: 66 Year
  Sex: Male

DRUGS (1)
  1. ENBREL [Suspect]
     Active Substance: ETANERCEPT
     Dosage: 75 MG, QWK
     Dates: start: 19990501

REACTIONS (2)
  - Injection site pain [Recovered/Resolved]
  - Needle issue [Recovered/Resolved]

NARRATIVE: CASE EVENT DATE: 201004
